FAERS Safety Report 24972508 (Version 1)
Quarter: 2025Q1

REPORT INFORMATION
  Report Type: Report from Study
  Country: US (occurrence: None)
  Receive Date: 20250215
  Receipt Date: 20250215
  Transmission Date: 20250408
  Serious: Yes (Other)
  Sender: ALEXION PHARMACEUTICALS
  Company Number: US-AstraZeneca-2012SE88116

PATIENT
  Age: 69 Year

DRUGS (1)
  1. NEXIUM [Suspect]
     Active Substance: ESOMEPRAZOLE MAGNESIUM
     Dosage: 1 DOSAGE FORM, QD

REACTIONS (5)
  - Pharyngeal disorder [Unknown]
  - Throat lesion [Unknown]
  - Autoimmune disorder [Unknown]
  - Dysphonia [Unknown]
  - Hypoacusis [Unknown]
